FAERS Safety Report 12388318 (Version 3)
Quarter: 2016Q2

REPORT INFORMATION
  Report Type: Spontaneous
  Country: US (occurrence: US)
  Receive Date: 20160520
  Receipt Date: 20160630
  Transmission Date: 20160815
  Serious: No
  Sender: FDA-Public Use
  Company Number: PHEH2016US011745

PATIENT
  Age: 59 Year
  Sex: Female
  Weight: 127.4 kg

DRUGS (1)
  1. EXTAVIA [Suspect]
     Active Substance: INTERFERON BETA-1B
     Indication: MULTIPLE SCLEROSIS
     Dosage: 1 ML, QOD
     Route: 058

REACTIONS (2)
  - Accidental exposure to product [Unknown]
  - Syringe issue [Recovered/Resolved]

NARRATIVE: CASE EVENT DATE: 20160504
